FAERS Safety Report 5477336-9 (Version None)
Quarter: 2007Q3

REPORT INFORMATION
  Report Type: 
  Country: None (occurrence: None)
  Receive Date: 20070905
  Receipt Date: 20061206
  Transmission Date: 20080115
  Serious: Yes (Hospitalization, Other)
  Sender: FDA-Public Use
  Company Number: 2007006150

PATIENT
  Age: 89 Year
  Sex: Female

DRUGS (8)
  1. DETROL LA [Suspect]
     Indication: DYSURIA
     Dates: start: 20061130
  2. CARDIZEM CD (DILTIAZEM HYDROCHORIDE) [Concomitant]
  3. GLIPIZIDE [Concomitant]
  4. HYDROCHOROTHIAZIDE (HYDROCHLOROTHIAZIDE) [Concomitant]
  5. OXAZEPAM [Concomitant]
  6. NITROFURANTOIN [Concomitant]
  7. MOBIC [Concomitant]
  8. NITRO-DUR [Concomitant]

REACTIONS (2)
  - URINARY RETENTION [None]
  - URINARY TRACT INFECTION [None]
